FAERS Safety Report 4496566-6 (Version None)
Quarter: 2004Q3

REPORT INFORMATION
  Report Type: 
  Country: None (occurrence: None)
  Receive Date: 20040923
  Receipt Date: 20031222
  Transmission Date: 20050211
  Serious: Yes (Other)
  Sender: FDA-Public Use
  Company Number: 2003126464

PATIENT
  Age: 4 Year
  Sex: Male
  Weight: 19.5047 kg

DRUGS (2)
  1. ZYRTEC [Suspect]
     Indication: HYPERSENSITIVITY
     Dosage: 1 MG (DAILY), ORAL
     Route: 048
     Dates: start: 20030101, end: 20031220
  2. BUDESONIDE (BUDESONIDE) [Concomitant]

REACTIONS (1)
  - MUSCLE TWITCHING [None]
